FAERS Safety Report 12213722 (Version 1)
Quarter: 2016Q1

REPORT INFORMATION
  Report Type: Spontaneous
  Country: US (occurrence: None)
  Receive Date: 20160325
  Receipt Date: 20160325
  Transmission Date: 20160526
  Serious: No
  Sender: FDA-Public Use
  Company Number: None

PATIENT
  Age: 40 Year
  Sex: Female

DRUGS (1)
  1. HUMIRA [Suspect]
     Active Substance: ADALIMUMAB
     Indication: RHEUMATOID ARTHRITIS
     Dosage: 40MG Q14 DAYS SQ
     Route: 058
     Dates: start: 20160225, end: 20160311

REACTIONS (3)
  - Nasopharyngitis [None]
  - Pleurisy [None]
  - Pleural effusion [None]

NARRATIVE: CASE EVENT DATE: 20160311
